FAERS Safety Report 8770928 (Version 2)
Quarter: 2012Q4

REPORT INFORMATION
  Report Type: 
  Country: JP (occurrence: JP)
  Receive Date: 20120906
  Receipt Date: 20120906
  Transmission Date: 20130627
  Serious: Yes (Death)
  Sender: FDA-Public Use
  Company Number: PHHY2012JP066514

PATIENT
  Age: 87 Year
  Sex: Female

DRUGS (3)
  1. VOLTAREN [Suspect]
     Indication: BACK PAIN
     Dosage: 50 mg, UNK
     Route: 054
     Dates: end: 201109
  2. NAPROXEN [Suspect]
     Indication: BACK PAIN
     Dosage: 600 mg daily
     Route: 048
     Dates: end: 20110905
  3. MORPHINE HYDROCHLORIDE [Concomitant]
     Indication: BACK PAIN
     Dosage: 5 mg, UNK

REACTIONS (2)
  - Cardiac valve disease [Fatal]
  - Large intestinal ulcer [Fatal]
